FAERS Safety Report 12104284 (Version 1)
Quarter: 2016Q1

REPORT INFORMATION
  Report Type: Spontaneous
  Country: FR (occurrence: FR)
  Receive Date: 20160223
  Receipt Date: 20160223
  Transmission Date: 20160526
  Serious: Yes (Other)
  Sender: FDA-Public Use
  Company Number: PHHY2016FR022750

PATIENT
  Age: 17 Year
  Sex: Male

DRUGS (1)
  1. RITALIN [Suspect]
     Active Substance: METHYLPHENIDATE HYDROCHLORIDE
     Indication: PSYCHOMOTOR HYPERACTIVITY
     Dosage: 2 DF, QD
     Route: 065
     Dates: start: 201504, end: 201602

REACTIONS (6)
  - Hypertensive crisis [Recovered/Resolved]
  - Fatigue [Not Recovered/Not Resolved]
  - Blood pressure increased [Unknown]
  - Headache [Recovered/Resolved]
  - Depressive symptom [Not Recovered/Not Resolved]
  - Irritability [Not Recovered/Not Resolved]

NARRATIVE: CASE EVENT DATE: 201511
